FAERS Safety Report 15345135 (Version 1)
Quarter: 2018Q4

REPORT INFORMATION
  Report Type: Spontaneous
  Country: ES (occurrence: ES)
  Receive Date: 20180903
  Receipt Date: 20180903
  Transmission Date: 20190204
  Serious: Yes (Hospitalization)
  Sender: FDA-Public Use
  Company Number: PHHY2018ES084451

PATIENT
  Age: 14 Year
  Sex: Female

DRUGS (6)
  1. RISPERIDONE. [Suspect]
     Active Substance: RISPERIDONE
     Indication: EATING DISORDER
  2. AREMIS (SERTRALINE HYDROCHLORIDE) [Suspect]
     Active Substance: SERTRALINE HYDROCHLORIDE
     Indication: EATING DISORDER
     Dosage: DOSAGE FORM: UNSPECIFIED
     Route: 065
  3. BROMAZEPAM [Suspect]
     Active Substance: BROMAZEPAM
     Indication: ABNORMAL BEHAVIOUR
     Dosage: DOSAGE FORM: UNSPECIFIED
     Route: 065
  4. RISPERIDONE. [Suspect]
     Active Substance: RISPERIDONE
     Indication: ABNORMAL BEHAVIOUR
     Dosage: DOSAGE FORM: UNSPECIFIED
     Route: 065
  5. AREMIS (SERTRALINE HYDROCHLORIDE) [Suspect]
     Active Substance: SERTRALINE HYDROCHLORIDE
     Indication: ABNORMAL BEHAVIOUR
  6. BROMAZEPAM [Suspect]
     Active Substance: BROMAZEPAM
     Indication: EATING DISORDER

REACTIONS (4)
  - Syncope [Unknown]
  - Aggression [Unknown]
  - Hallucination [Unknown]
  - Depression [Unknown]
